FAERS Safety Report 8820475 (Version 1)
Quarter: 2012Q4

REPORT INFORMATION
  Report Type: 
  Country: GB (occurrence: GB)
  Receive Date: 20121002
  Receipt Date: 20121002
  Transmission Date: 20130627
  Serious: Yes (Other)
  Sender: FDA-Public Use
  Company Number: GB-NOVOPROD-360466

PATIENT
  Age: 67 Year
  Sex: Female

DRUGS (3)
  1. VICTOZA [Suspect]
     Indication: PRODUCT USED FOR UNKNOWN INDICATION
     Dosage: 0.6 mg, qd
     Route: 065
     Dates: start: 20110408
  2. VICTOZA [Suspect]
     Dosage: 1.2 mg, qd
     Route: 065
     Dates: start: 201104
  3. GLICLAZIDE [Concomitant]

REACTIONS (1)
  - Metastases to liver [Unknown]
